FAERS Safety Report 8818621 (Version 1)
Quarter: 2012Q4

REPORT INFORMATION
  Report Type: Spontaneous
  Country: US (occurrence: None)
  Receive Date: 20121002
  Receipt Date: 20121002
  Transmission Date: 20130627
  Serious: Yes (Death, Hospitalization)
  Sender: FDA-Public Use
  Company Number: 139646

PATIENT
  Age: 75 Year

DRUGS (1)
  1. CISPLATIN [Suspect]
     Indication: ESOPHAGEAL CANCER

REACTIONS (2)
  - Pulmonary haemorrhage [None]
  - Acute respiratory failure [None]
